FAERS Safety Report 7107466-7 (Version None)
Quarter: 2010Q4

REPORT INFORMATION
  Report Type: 
  Country: None (occurrence: None)
  Receive Date: 20101112
  Receipt Date: 20101027
  Transmission Date: 20110411
  Serious: Yes (Other)
  Sender: FDA-Public Use
  Company Number: 2010BI038085

PATIENT
  Sex: Male

DRUGS (3)
  1. ZEVALIN [Suspect]
     Indication: FOLLICLE CENTRE LYMPHOMA, FOLLICULAR GRADE I, II, III
  2. RITUXIMAB [Concomitant]
  3. PREV MEDS [Concomitant]

REACTIONS (1)
  - PNEUMATOSIS INTESTINALIS [None]
